FAERS Safety Report 9735839 (Version 2)
Quarter: 2015Q3

REPORT INFORMATION
  Report Type: Spontaneous
  Country: US (occurrence: US)
  Receive Date: 20131206
  Receipt Date: 20150804
  Transmission Date: 20151125
  Serious: No
  Sender: FDA-Public Use
  Company Number: US-GILEAD-2009-0024133

PATIENT
  Age: 68 Year
  Sex: Female
  Weight: 96.61 kg

DRUGS (11)
  1. LETAIRIS [Suspect]
     Active Substance: AMBRISENTAN
     Indication: PULMONARY ARTERIAL HYPERTENSION
     Route: 048
     Dates: start: 20090526
  2. HYDROCHLOROTHIAZIDE/OLMESARTAN MEDOXOMIL [Concomitant]
  3. FOLIC ACID. [Concomitant]
     Active Substance: FOLIC ACID
  4. NABUMETONE. [Concomitant]
     Active Substance: NABUMETONE
  5. ELAVIL [Concomitant]
     Active Substance: AMITRIPTYLINE HYDROCHLORIDE
  6. METHOTREXATE [Concomitant]
     Active Substance: METHOTREXATE
  7. HYDROCHLOROTHIAZIDE/TRIAMTERENE [Concomitant]
  8. REVATIO [Concomitant]
     Active Substance: SILDENAFIL CITRATE
  9. KLONOPIN [Concomitant]
     Active Substance: CLONAZEPAM
  10. CARDIZEM CD [Concomitant]
     Active Substance: DILTIAZEM HYDROCHLORIDE
  11. FLUOXETINE [Concomitant]
     Active Substance: FLUOXETINE\FLUOXETINE HYDROCHLORIDE

REACTIONS (1)
  - Dyspnoea [Unknown]
